FAERS Safety Report 21837836 (Version 4)
Quarter: 2023Q1

REPORT INFORMATION
  Report Type: Spontaneous
  Country: US (occurrence: US)
  Receive Date: 20230109
  Receipt Date: 20230317
  Transmission Date: 20230417
  Serious: Yes (Hospitalization, Other)
  Sender: FDA-Public Use
  Company Number: US-PFIZER INC-PV202300002672

PATIENT
  Age: 65 Year
  Sex: Female
  Weight: 61.224 kg

DRUGS (3)
  1. COLESTIPOL HYDROCHLORIDE [Suspect]
     Active Substance: COLESTIPOL HYDROCHLORIDE
     Indication: Gastric disorder
     Dosage: UNK
  2. COLESTIPOL HYDROCHLORIDE [Suspect]
     Active Substance: COLESTIPOL HYDROCHLORIDE
     Dosage: 2 DF, 4X/DAY (2 TABLETS 4X/DAY)
  3. COLESTIPOL HYDROCHLORIDE [Suspect]
     Active Substance: COLESTIPOL HYDROCHLORIDE
     Dosage: 1 G, 3X/DAY
     Dates: start: 2020

REACTIONS (8)
  - Cholecystitis [Recovered/Resolved]
  - Colitis [Not Recovered/Not Resolved]
  - Gastrointestinal inflammation [Recovered/Resolved]
  - Gastrointestinal infection [Unknown]
  - Lower gastrointestinal haemorrhage [Unknown]
  - Enteritis infectious [Unknown]
  - Gastrointestinal disorder [Unknown]
  - Off label use [Unknown]

NARRATIVE: CASE EVENT DATE: 20200301
